FAERS Safety Report 20233182 (Version 1)
Quarter: 2021Q4

REPORT INFORMATION
  Report Type: Spontaneous
  Country: US (occurrence: US)
  Receive Date: 20211227
  Receipt Date: 20211227
  Transmission Date: 20220303
  Serious: Yes (Other)
  Sender: FDA-Public Use
  Company Number: US-UCBSA-2021060152

PATIENT
  Sex: Female

DRUGS (20)
  1. KEPPRA [Suspect]
     Active Substance: LEVETIRACETAM
     Indication: Status epilepticus
     Dosage: 1000 MG Q AM, 1500 Q PM
  2. BRIVIACT [Suspect]
     Active Substance: BRIVARACETAM
     Indication: Status epilepticus
     Dosage: 100 MILLIGRAM, 2X/DAY (BID)
  3. PHENOBARBITAL [Suspect]
     Active Substance: PHENOBARBITAL
     Indication: Status epilepticus
     Dosage: 97.2 MILLIGRAM, 2X/DAY (BID)
  4. CLOBAZAM [Suspect]
     Active Substance: CLOBAZAM
     Indication: Status epilepticus
     Dosage: 10 MILLIGRAM, 2X/DAY (BID)
  5. CLOBAZAM [Suspect]
     Active Substance: CLOBAZAM
     Dosage: 20 MILLIGRAM, 2X/DAY (BID)
  6. VALPROIC ACID [Suspect]
     Active Substance: VALPROIC ACID
     Indication: Status epilepticus
     Dosage: UNK
  7. PROPOFOL [Suspect]
     Active Substance: PROPOFOL
     Indication: Status epilepticus
     Dosage: UNK
  8. MIDAZOLAM [Suspect]
     Active Substance: MIDAZOLAM
     Indication: Status epilepticus
     Dosage: UNK
  9. KETAMINE [Suspect]
     Active Substance: KETAMINE
     Indication: Status epilepticus
     Dosage: 2 MILLIGRAM/KILOGRAM
  10. KETAMINE [Suspect]
     Active Substance: KETAMINE
     Dosage: 2 MILLIGRAM/KILOGRAM, HOURLY
  11. KETAMINE [Suspect]
     Active Substance: KETAMINE
     Dosage: 6 MILLIGRAM/KILOGRAM, HOURLY
  12. VALPROATE [Suspect]
     Active Substance: VALPROIC ACID
     Indication: Status epilepticus
     Dosage: 1000 MILLIGRAM, 2X/DAY (BID)
  13. VALPROATE [Suspect]
     Active Substance: VALPROIC ACID
     Dosage: 2000 MILLIGRAM, 2X/DAY (BID)
  14. LEVOCARNITINE [Suspect]
     Active Substance: LEVOCARNITINE
     Indication: Status epilepticus
     Dosage: 600 MILLIGRAM, 2X/DAY (BID)
  15. LEVOCARNITINE [Suspect]
     Active Substance: LEVOCARNITINE
     Dosage: 660 MILLIGRAM, 2X/DAY (BID)
  16. CANNABIDIOL [Suspect]
     Active Substance: CANNABIDIOL
     Indication: Status epilepticus
     Dosage: 10 MILLIGRAM/KILOGRAM DAY
  17. LORAZEPAM [Suspect]
     Active Substance: LORAZEPAM
     Indication: Status epilepticus
     Dosage: 4 MILLIGRAM
     Route: 042
  18. FELBAMATE [Suspect]
     Active Substance: FELBAMATE
     Indication: Status epilepticus
     Dosage: 600 MILLIGRAM, 3X/DAY (TID)
  19. FENFLURAMINE [Concomitant]
     Active Substance: FENFLURAMINE
     Indication: Status epilepticus
     Dosage: AT A DOSE OF 0.4 MG/KG/DAY (18.4 MG/- DAY) IN EQUAL DIVIDED DOSES ABOUT 12 HOURS APART
  20. FENFLURAMINE [Concomitant]
     Active Substance: FENFLURAMINE
     Dosage: INCREASED TO 0.7 MG/KG/DAY IN DIVIDED DOSES (16.1 MG BID)

REACTIONS (5)
  - Tonic convulsion [Recovering/Resolving]
  - Generalised tonic-clonic seizure [Recovering/Resolving]
  - Parainfluenzae virus infection [Unknown]
  - Multiple-drug resistance [Unknown]
  - Product use in unapproved indication [Unknown]
